FAERS Safety Report 7946612-X (Version None)
Quarter: 2011Q4

REPORT INFORMATION
  Report Type: 
  Country: None (occurrence: None)
  Receive Date: 20111129
  Receipt Date: 20111118
  Transmission Date: 20120403
  Serious: Yes (Other)
  Sender: FDA-Public Use
  Company Number: US-BAYER-2011-073652

PATIENT
  Age: 34 Year
  Sex: Female
  Weight: 108.84 kg

DRUGS (2)
  1. YASMIN [Suspect]
     Dosage: UNK
     Dates: start: 20081101
  2. YAZ [Suspect]
     Dosage: UNK
     Dates: start: 20090701, end: 20091006

REACTIONS (3)
  - PULMONARY EMBOLISM [None]
  - EMOTIONAL DISTRESS [None]
  - INJURY [None]
